FAERS Safety Report 11966429 (Version 3)
Quarter: 2017Q2

REPORT INFORMATION
  Report Type: Report from Study
  Country: BR (occurrence: BR)
  Receive Date: 20160127
  Receipt Date: 20170406
  Transmission Date: 20170829
  Serious: Yes (Other)
  Sender: FDA-Public Use
  Company Number: PHHY2015BR097313

PATIENT
  Sex: Female
  Weight: 64 kg

DRUGS (2)
  1. DIOVAN [Suspect]
     Active Substance: VALSARTAN
     Indication: HYPERTENSION
     Route: 065
  2. DIOVAN HCT [Suspect]
     Active Substance: HYDROCHLOROTHIAZIDE\VALSARTAN
     Indication: HYPERTENSION
     Dosage: 1 DF (HYDROCHLOROTHIAZIDE 12.5 MG, VALSARTAN 160 MG), QD
     Route: 048

REACTIONS (22)
  - Nephrolithiasis [Unknown]
  - Teeth brittle [Unknown]
  - Bone density decreased [Unknown]
  - Tremor [Unknown]
  - Spinal column injury [Unknown]
  - Accident at home [Unknown]
  - Syncope [Unknown]
  - Blood pressure increased [Unknown]
  - Drug dispensing error [Unknown]
  - Mood altered [Unknown]
  - Spinal disorder [Unknown]
  - Pain [Unknown]
  - Gait disturbance [Unknown]
  - Tooth loss [Unknown]
  - Depressed mood [Unknown]
  - Blood pressure decreased [Unknown]
  - Mobility decreased [Unknown]
  - Urinary incontinence [Unknown]
  - Fall [Unknown]
  - Body height decreased [Unknown]
  - Pain in extremity [Unknown]
  - Incorrect dosage administered [Unknown]
